FAERS Safety Report 4798067-4 (Version None)
Quarter: 2005Q4

REPORT INFORMATION
  Report Type: 
  Country: None (occurrence: None)
  Receive Date: 20051006
  Receipt Date: 20051006
  Transmission Date: 20060501
  Serious: Yes (Hospitalization)
  Sender: FDA-Public Use
  Company Number: None

PATIENT
  Age: 19 Year
  Sex: Male
  Weight: 106.5953 kg

DRUGS (7)
  1. HYDROMORPHONE [Suspect]
     Indication: PAIN
     Dosage: SEE IMAGE
     Route: 042
     Dates: start: 20050206, end: 20050209
  2. HYDROMORPHONE [Suspect]
     Indication: PAIN
     Dosage: SEE IMAGE
     Route: 042
     Dates: start: 20050210, end: 20050212
  3. KETOROLAC TROMETHAMINE [Concomitant]
  4. IBUPROFEN [Concomitant]
  5. MORPHINE [Concomitant]
  6. HEPARIN [Concomitant]
  7. RANITIDINE [Concomitant]

REACTIONS (1)
  - RASH MACULO-PAPULAR [None]
